FAERS Safety Report 5375440-7 (Version None)
Quarter: 2007Q2

REPORT INFORMATION
  Report Type: 
  Country: None (occurrence: None)
  Receive Date: 20070629
  Receipt Date: 20070625
  Transmission Date: 20071010
  Serious: Yes (Death)
  Sender: FDA-Public Use
  Company Number: CN-BOEHRINGER INGELHEIM PHARMACEUTICALS, INC.-2007-DE-03768GD

PATIENT

DRUGS (2)
  1. NEVIRAPINE [Suspect]
     Indication: HIV INFECTION
  2. NUCLEOSIDE REVERSE TRANSCRIPTASE INHIBITORS [Concomitant]
     Indication: HIV INFECTION

REACTIONS (1)
  - HEPATIC FAILURE [None]
